FAERS Safety Report 21165643 (Version 2)
Quarter: 2022Q3

REPORT INFORMATION
  Report Type: Spontaneous
  Country: US (occurrence: US)
  Receive Date: 20220803
  Receipt Date: 20220907
  Transmission Date: 20221027
  Serious: No
  Sender: FDA-Public Use
  Company Number: US-BRISTOL-MYERS SQUIBB COMPANY-2022-084265

PATIENT
  Age: 56 Year
  Sex: Female

DRUGS (12)
  1. REVLIMID [Suspect]
     Active Substance: LENALIDOMIDE
     Indication: Plasma cell myeloma
     Dosage: FREQUENCY: 14 DAYS DAILY THEN 14 DAYS OFF TO COMPLETE 28 DAY CYCLE
     Route: 048
     Dates: start: 20210702
  2. ACYCLOVIR [Concomitant]
     Active Substance: ACYCLOVIR
     Indication: Product used for unknown indication
     Route: 065
  3. AMLODIPINE [Concomitant]
     Active Substance: AMLODIPINE BESYLATE
     Indication: Product used for unknown indication
     Route: 065
  4. CARVEDILOL TAB 3.125MG [Concomitant]
     Indication: Product used for unknown indication
     Route: 065
  5. ESTRADIOL TAB 2MG [Concomitant]
     Indication: Product used for unknown indication
     Route: 065
  6. FAMOTIDINE [Concomitant]
     Active Substance: FAMOTIDINE
     Indication: Product used for unknown indication
     Route: 065
  7. LEVOTHYROXIN TAB 100 MCG [Concomitant]
     Indication: Product used for unknown indication
     Route: 065
  8. CLARITIN TAB 10MG [Concomitant]
     Indication: Product used for unknown indication
     Route: 065
  9. DOXYCYCL HYC TAB 100MG [Concomitant]
     Indication: Product used for unknown indication
     Route: 065
  10. KP VITAMIN D [Concomitant]
     Indication: Product used for unknown indication
     Route: 065
  11. MULTIVITAMIN TAB [Concomitant]
     Indication: Product used for unknown indication
     Route: 065
  12. BACTRIM DS [Concomitant]
     Active Substance: SULFAMETHOXAZOLE\TRIMETHOPRIM
     Route: 065

REACTIONS (9)
  - Diarrhoea [Unknown]
  - Muscle spasms [Unknown]
  - Disturbance in attention [Unknown]
  - Abdominal discomfort [Unknown]
  - Fatigue [Unknown]
  - Muscle spasms [Unknown]
  - Pain [Unknown]
  - Arthralgia [Unknown]
  - Off label use [Unknown]
